FAERS Safety Report 13238497 (Version 1)
Quarter: 2017Q1

REPORT INFORMATION
  Report Type: Spontaneous
  Country: US (occurrence: US)
  Receive Date: 20170215
  Receipt Date: 20170215
  Transmission Date: 20170428
  Serious: No
  Sender: FDA-Public Use
  Company Number: None

PATIENT
  Age: 58 Year
  Sex: Male
  Weight: 72.64 kg

DRUGS (1)
  1. LEVOFLOXAAN(LEVO-SAVIPHARM [Suspect]
     Active Substance: LEVOFLOXACIN
     Indication: URINARY TRACT INFECTION
     Dosage: 2 X P/DAYS  5 DYS
     Route: 048
     Dates: start: 20151111, end: 20151115

REACTIONS (2)
  - Tendon injury [None]
  - Tendon disorder [None]

NARRATIVE: CASE EVENT DATE: 20151111
